FAERS Safety Report 15797592 (Version 1)
Quarter: 2019Q1

REPORT INFORMATION
  Report Type: Spontaneous
  Country: US (occurrence: US)
  Receive Date: 20190104
  Receipt Date: 20190104
  Transmission Date: 20190417
  Serious: No
  Sender: FDA-Public Use
  Company Number: None

PATIENT
  Age: 61 Year
  Weight: 102.06 kg

DRUGS (1)
  1. STELARA [Suspect]
     Active Substance: USTEKINUMAB
     Indication: PSORIASIS
     Dosage: EVERY 12 WEEKS
     Route: 058
     Dates: start: 201508

REACTIONS (3)
  - Infection [None]
  - Wrist surgery [None]
  - Therapy cessation [None]
